FAERS Safety Report 8426359-6 (Version None)
Quarter: 2012Q2

REPORT INFORMATION
  Report Type: 
  Country: None (occurrence: None)
  Receive Date: 20120323
  Receipt Date: 20110426
  Transmission Date: 20120825
  Serious: Yes (Other)
  Sender: FDA-Public Use
  Company Number: 163-21880-11043390

PATIENT
  Age: 75 Year
  Sex: Male

DRUGS (9)
  1. REVLIMID [Suspect]
     Indication: MYELODYSPLASTIC SYNDROME
     Dosage: 10 MG, 1 IN 1 D, PO
     Route: 048
     Dates: start: 20110401
  2. METOPROLOL SUCCINATE [Concomitant]
  3. NATEGLINIDE (NATEGLINNIDE) [Concomitant]
  4. BENICAR (OLMESARTAN MEDOXOFIL) [Concomitant]
  5. CALCIUM CITRATE (CALCIUM CITRATE) [Concomitant]
  6. PHOSPHA 250 NEUTRA (PHOSPHORUS) [Concomitant]
  7. WARFARIN SODIUM [Concomitant]
  8. POTASSIUM CHLORIDE CR (POTASSIUM CHLORIDE) [Concomitant]
  9. MAG-OXIDE (MAGNESIUM OXIDE) [Concomitant]

REACTIONS (1)
  - WHITE BLOOD CELL COUNT DECREASED [None]
